FAERS Safety Report 14365876 (Version 3)
Quarter: 2018Q1

REPORT INFORMATION
  Report Type: Spontaneous
  Country: GB (occurrence: GB)
  Receive Date: 20180109
  Receipt Date: 20180115
  Transmission Date: 20180509
  Serious: Yes (Other)
  Sender: FDA-Public Use
  Company Number: GB-MYLANLABS-2016M1058954

PATIENT
  Age: 20 Year
  Sex: Female

DRUGS (3)
  1. CLOZARIL [Suspect]
     Active Substance: CLOZAPINE
     Dosage: UNK
     Route: 048
     Dates: start: 20170703
  2. CLOZARIL [Suspect]
     Active Substance: CLOZAPINE
     Indication: BORDERLINE PERSONALITY DISORDER
     Dosage: UNK
     Dates: start: 20161223
  3. CLOZARIL [Suspect]
     Active Substance: CLOZAPINE
     Indication: SCHIZOPHRENIA
     Dosage: UNK
     Dates: start: 20170612

REACTIONS (8)
  - Product use in unapproved indication [Unknown]
  - Foreign body in gastrointestinal tract [Unknown]
  - Refusal of examination [Unknown]
  - Haemoglobin increased [Recovered/Resolved]
  - Asthma [Unknown]
  - Neutrophil count decreased [Recovered/Resolved]
  - Urinary retention [Unknown]
  - White blood cell count decreased [Recovered/Resolved]

NARRATIVE: CASE EVENT DATE: 20161223
